FAERS Safety Report 5900327-8 (Version None)
Quarter: 2008Q3

REPORT INFORMATION
  Report Type: 
  Country: None (occurrence: None)
  Receive Date: 20080926
  Receipt Date: 20080915
  Transmission Date: 20090109
  Serious: Yes (Death, Hospitalization, Disabling, Other)
  Sender: FDA-Public Use
  Company Number: DE-ROCHE-475263

PATIENT
  Age: 66 Year
  Sex: Female
  Weight: 47 kg

DRUGS (13)
  1. CAPECITABINE [Suspect]
     Dosage: Q1-Q14
     Route: 048
     Dates: start: 20060707, end: 20061108
  2. AMARYL [Concomitant]
     Route: 048
     Dates: start: 20061019, end: 20061101
  3. 1 CONCOMITANT DRUG [Concomitant]
  4. DOMPERIDON [Concomitant]
     Indication: FATIGUE
     Route: 048
     Dates: start: 20060928
  5. PANTOZOL [Concomitant]
     Route: 048
     Dates: start: 20060301
  6. IBUPROFEN [Concomitant]
     Indication: BONE PAIN
     Route: 048
     Dates: start: 20060301, end: 20061101
  7. 1 CONCOMITANT DRUG [Concomitant]
     Indication: DRY MOUTH
     Dosage: REPORTED AS GARGLE LIQUID
     Route: 048
     Dates: start: 20060817, end: 20061101
  8. 1 CONCOMITANT DRUG [Concomitant]
     Dosage: REPORTED AS ^DALORUIM^
  9. AROMASIN [Concomitant]
  10. BELOC-ZOK [Concomitant]
     Indication: HYPERTENSION
     Dosage: FREQUENCY: QD (EVERY DAY)
     Route: 048
     Dates: start: 20060301, end: 20061101
  11. DOLORMIN [Concomitant]
     Indication: PAIN
     Route: 048
     Dates: start: 20050501
  12. PIPERACILLIN [Concomitant]
     Route: 048
  13. SULBACTAM [Concomitant]
     Indication: TRACHEAL OEDEMA
     Dosage: FREQUENCY: 4X
     Route: 055

REACTIONS (6)
  - DEATH [None]
  - OESOPHAGEAL STENOSIS [None]
  - PSEUDOMONAS INFECTION [None]
  - SUPRAVENTRICULAR TACHYCARDIA [None]
  - TRACHEAL STENOSIS [None]
  - TRACHEO-OESOPHAGEAL FISTULA [None]
